FAERS Safety Report 6172730-5 (Version None)
Quarter: 2009Q2

REPORT INFORMATION
  Report Type: 
  Country: None (occurrence: None)
  Receive Date: 20090430
  Receipt Date: 20090424
  Transmission Date: 20091009
  Serious: Yes (Hospitalization)
  Sender: FDA-Public Use
  Company Number: US-B.I. PHARMACEUTICALS,INC./RIDGEFIELD-2009-BP-05190BP

PATIENT
  Sex: Male

DRUGS (7)
  1. SPIRIVA [Suspect]
     Indication: EMPHYSEMA
     Dosage: 18MCG
     Route: 055
  2. SPIRIVA [Suspect]
     Indication: CHRONIC OBSTRUCTIVE PULMONARY DISEASE
  3. ADVAIR HFA [Concomitant]
     Indication: EMPHYSEMA
     Route: 055
  4. SINGULAIR [Concomitant]
     Indication: SEASONAL ALLERGY
     Route: 048
  5. HYDROCHLOROTHIAZIDE [Concomitant]
     Indication: HYPERTENSION
     Route: 048
  6. TRAVATAN [Concomitant]
     Indication: GLAUCOMA
     Route: 061
     Dates: start: 20090101
  7. OXYGEN [Concomitant]
     Indication: EMPHYSEMA
     Route: 045

REACTIONS (2)
  - HEART RATE INCREASED [None]
  - PNEUMONIA [None]
